FAERS Safety Report 8073960-8 (Version None)
Quarter: 2012Q1

REPORT INFORMATION
  Report Type: 
  Country: None (occurrence: None)
  Receive Date: 20120119
  Receipt Date: 20120109
  Transmission Date: 20120608
  Serious: Yes (Hospitalization)
  Sender: FDA-Public Use
  Company Number: 1000027127

PATIENT
  Age: 25 Year
  Sex: Female

DRUGS (4)
  1. TRANDOLAPRIL [Suspect]
     Dosage: ORAL
     Route: 048
  2. AMITRIPTYLINE HCL [Suspect]
     Dosage: ORAL
     Route: 048
  3. ESCITALOPRAM OXALATE [Suspect]
     Dosage: ORAL
     Route: 048
  4. LAXATIVES (LAXATIVES) [Concomitant]

REACTIONS (1)
  - CONVULSION [None]
